FAERS Safety Report 16227940 (Version 1)
Quarter: 2019Q2

REPORT INFORMATION
  Report Type: Spontaneous
  Country: US (occurrence: US)
  Receive Date: 20190422
  Receipt Date: 20190422
  Transmission Date: 20190711
  Serious: No
  Sender: FDA-Public Use
  Company Number: None

PATIENT
  Age: 70 Year
  Sex: Male
  Weight: 75.6 kg

DRUGS (9)
  1. PREDNISONE. [Concomitant]
     Active Substance: PREDNISONE
  2. ACYCLOVIR. [Concomitant]
     Active Substance: ACYCLOVIR
  3. DOXORUBICIN [Suspect]
     Active Substance: DOXORUBICIN
  4. ATORVASTATIN [Concomitant]
     Active Substance: ATORVASTATIN
  5. RITUXIMAB. [Suspect]
     Active Substance: RITUXIMAB
     Indication: DIFFUSE LARGE B-CELL LYMPHOMA
     Dosage: ?          OTHER FREQUENCY:21 DAY CYCLE;?
     Route: 041
     Dates: start: 20181220, end: 20190403
  6. OMEPRAZOLE. [Concomitant]
     Active Substance: OMEPRAZOLE
  7. COMPAZINE [Concomitant]
     Active Substance: PROCHLORPERAZINE MALEATE
  8. VINCRISTINE [Suspect]
     Active Substance: VINCRISTINE
  9. CYCLOPHOSPHAMIDE. [Suspect]
     Active Substance: CYCLOPHOSPHAMIDE

REACTIONS (1)
  - Troponin increased [None]

NARRATIVE: CASE EVENT DATE: 20190405
